FAERS Safety Report 22303392 (Version 1)
Quarter: 2023Q2

REPORT INFORMATION
  Report Type: Spontaneous
  Country: US (occurrence: US)
  Receive Date: 20230510
  Receipt Date: 20230510
  Transmission Date: 20230721
  Serious: No
  Sender: FDA-Public Use
  Company Number: US-BAYER-2023A061190

PATIENT
  Sex: Male

DRUGS (3)
  1. ALEVE [Suspect]
     Active Substance: NAPROXEN SODIUM
     Indication: Product used for unknown indication
     Route: 065
  2. CLARITIN [Suspect]
     Active Substance: LORATADINE
     Indication: Hypersensitivity
     Route: 048
  3. CLARITIN [Suspect]
     Active Substance: LORATADINE
     Indication: Nasopharyngitis

REACTIONS (2)
  - Food allergy [None]
  - Abdominal pain upper [None]

NARRATIVE: CASE EVENT DATE: 20230502
